FAERS Safety Report 17019958 (Version 1)
Quarter: 2019Q4

REPORT INFORMATION
  Report Type: Spontaneous
  Country: SE (occurrence: SE)
  Receive Date: 20191112
  Receipt Date: 20191112
  Transmission Date: 20200122
  Serious: Yes (Hospitalization)
  Sender: FDA-Public Use
  Company Number: SE-ACCORD-160566

PATIENT
  Age: 74 Year
  Sex: Female

DRUGS (4)
  1. FOLACIN [Concomitant]
  2. QUETIAPINE/QUETIAPINE FUMARATE [Concomitant]
  3. METHOTREXATE. [Suspect]
     Active Substance: METHOTREXATE
     Indication: NEURODERMATITIS
     Dates: end: 20190927
  4. ELIQUIS [Concomitant]
     Active Substance: APIXABAN

REACTIONS (4)
  - Anaemia [Unknown]
  - Thrombocytopenia [Unknown]
  - Off label use [Unknown]
  - Blood folate decreased [Unknown]

NARRATIVE: CASE EVENT DATE: 20190927
